FAERS Safety Report 21263386 (Version 1)
Quarter: 2022Q3

REPORT INFORMATION
  Report Type: Report from Study
  Country: CA (occurrence: CA)
  Receive Date: 20220829
  Receipt Date: 20220829
  Transmission Date: 20221026
  Serious: Yes (Other)
  Sender: FDA-Public Use
  Company Number: CA-NOVARTISPH-NVSC2022CA155999

PATIENT
  Sex: Female
  Weight: 114 kg

DRUGS (2)
  1. PIRFENIDONE [Suspect]
     Active Substance: PIRFENIDONE
     Indication: Idiopathic pulmonary fibrosis
     Dosage: 2403 MG, QD
     Route: 048
  2. PIRFENIDONE [Suspect]
     Active Substance: PIRFENIDONE
     Dosage: UNK
     Route: 048

REACTIONS (4)
  - Arteriosclerosis coronary artery [Unknown]
  - Osseous cryptococcosis [Unknown]
  - Restrictive pulmonary disease [Unknown]
  - Lung disorder [Unknown]
